FAERS Safety Report 13850940 (Version 1)
Quarter: 2017Q3

REPORT INFORMATION
  Report Type: Spontaneous
  Country: FR (occurrence: FR)
  Receive Date: 20170809
  Receipt Date: 20170809
  Transmission Date: 20171127
  Serious: Yes (Death, Hospitalization)
  Sender: FDA-Public Use
  Company Number: FR-TEVA-793690ROM

PATIENT
  Age: 66 Year
  Sex: Male

DRUGS (3)
  1. CARBOPLATINE TEVA [Suspect]
     Active Substance: CARBOPLATIN
     Indication: HYPOPHARYNGEAL CANCER STAGE IV
     Dosage: COURSE 2 OF PROTOCOL CARBOPLATIN-PACLITAXEL
     Dates: start: 20170626, end: 20170626
  2. CARBOPLATINE HOSPIRA [Suspect]
     Active Substance: CARBOPLATIN
     Indication: HYPOPHARYNGEAL CANCER STAGE IV
     Dosage: COURSE 1 OF PROTOCOL CARBOPLATIN-PACLITAXEL
     Route: 042
     Dates: start: 20170606, end: 20170606
  3. PACLITAXEL HOSPIRA [Suspect]
     Active Substance: PACLITAXEL
     Indication: HYPOPHARYNGEAL CANCER STAGE IV
     Dosage: COURSES 1 AND 2 OF PROTOCOL CARBOPLATIN-PACLITAXEL
     Route: 042
     Dates: start: 20170606, end: 20170626

REACTIONS (4)
  - Neutropenic colitis [Fatal]
  - Pancytopenia [Fatal]
  - Confusional state [Unknown]
  - Shock [Fatal]

NARRATIVE: CASE EVENT DATE: 201707
